FAERS Safety Report 9750824 (Version 1)
Quarter: 2013Q4

REPORT INFORMATION
  Report Type: Spontaneous
  Country: US (occurrence: US)
  Receive Date: 20131212
  Receipt Date: 20131212
  Transmission Date: 20140711
  Serious: No
  Sender: FDA-Public Use
  Company Number: US-BIOGENIDEC-2013BI101046

PATIENT
  Sex: Female
  Weight: 53 kg

DRUGS (7)
  1. TECFIDERA [Suspect]
     Indication: PRODUCT USED FOR UNKNOWN INDICATION
     Route: 048
  2. TECFIDERA [Suspect]
     Indication: PRODUCT USED FOR UNKNOWN INDICATION
     Route: 048
  3. OXYBUTYNIN [Concomitant]
  4. FOSAMAX [Concomitant]
  5. LEVOTHYROXIN [Concomitant]
  6. VITAMIN D3 [Concomitant]
  7. CALCIUM [Concomitant]

REACTIONS (2)
  - Urticaria [Recovered/Resolved]
  - Flushing [Recovered/Resolved]
